FAERS Safety Report 21998391 (Version 1)
Quarter: 2023Q1

REPORT INFORMATION
  Report Type: Report from Study
  Country: US (occurrence: US)
  Receive Date: 20230216
  Receipt Date: 20230216
  Transmission Date: 20230418
  Serious: Yes (Other)
  Sender: FDA-Public Use
  Company Number: US-TAKEDA-2023TUS016082

PATIENT
  Age: 45 Year
  Sex: Female

DRUGS (1)
  1. VON WILLEBRAND FACTOR HUMAN [Suspect]
     Active Substance: VON WILLEBRAND FACTOR HUMAN
     Indication: Product used for unknown indication
     Dosage: 1600 INTERNATIONAL UNIT
     Route: 065

REACTIONS (2)
  - Epistaxis [Unknown]
  - Nasal neoplasm benign [Unknown]

NARRATIVE: CASE EVENT DATE: 20230208
